FAERS Safety Report 6489091-4 (Version None)
Quarter: 2009Q4

REPORT INFORMATION
  Report Type: 
  Country: None (occurrence: None)
  Receive Date: 20091210
  Receipt Date: 20091127
  Transmission Date: 20100525
  Serious: Yes (Hospitalization, Other)
  Sender: FDA-Public Use
  Company Number: FR-ELI_LILLY_AND_COMPANY-FR200908005302

PATIENT
  Age: 64 Year
  Sex: Male

DRUGS (11)
  1. ALIMTA [Suspect]
     Indication: LUNG ADENOCARCINOMA METASTATIC
     Dosage: 500 MG/M2, OTHER (DAY ONE EVERY 21 DAYS)
     Route: 042
     Dates: start: 20090629
  2. ALIMTA [Suspect]
     Dosage: 75% OF THE TOTAL DOSE
     Route: 042
     Dates: start: 20090909, end: 20090922
  3. FOLIC ACID [Concomitant]
  4. VITAMIN B-12 [Concomitant]
  5. CORTICOSTEROID NOS [Concomitant]
     Indication: PROPHYLAXIS
  6. NEXIUM [Concomitant]
  7. SOLUPRED [Concomitant]
  8. POLARAMINE [Concomitant]
  9. KEPPRA [Concomitant]
  10. XYZAL [Concomitant]
  11. ANTIHISTAMINES [Concomitant]

REACTIONS (4)
  - INFLAMMATION [None]
  - OEDEMA PERIPHERAL [None]
  - RASH ERYTHEMATOUS [None]
  - SCLERODERMA [None]
